FAERS Safety Report 22056784 (Version 1)
Quarter: 2023Q1

REPORT INFORMATION
  Report Type: Report from Study
  Country: BR (occurrence: BR)
  Receive Date: 20230303
  Receipt Date: 20230303
  Transmission Date: 20230417
  Serious: Yes (Hospitalization, Other)
  Sender: FDA-Public Use
  Company Number: BR-JNJFOC-20230247632

PATIENT
  Age: 54 Year
  Sex: Female
  Weight: 55.4 kg

DRUGS (1)
  1. TECLISTAMAB [Suspect]
     Active Substance: TECLISTAMAB
     Indication: Plasma cell myeloma
     Dosage: FIRST CYCLE
     Route: 058
     Dates: start: 20230120

REACTIONS (3)
  - Delirium [Not Recovered/Not Resolved]
  - Blood creatinine increased [Unknown]
  - Hospitalisation [Unknown]

NARRATIVE: CASE EVENT DATE: 20230208
